FAERS Safety Report 7957743-2 (Version None)
Quarter: 2011Q4

REPORT INFORMATION
  Report Type: 
  Country: None (occurrence: None)
  Receive Date: 20111205
  Receipt Date: 20111201
  Transmission Date: 20120403
  Serious: Yes (Death, Hospitalization)
  Sender: FDA-Public Use
  Company Number: PHEH2011US08210

PATIENT
  Sex: Male
  Weight: 126 kg

DRUGS (1)
  1. EXJADE [Suspect]
     Indication: IRON OVERLOAD
     Dosage: 1000 MG, DAILY
     Route: 048
     Dates: start: 20110511

REACTIONS (3)
  - ASTHENIA [None]
  - OEDEMA [None]
  - CHRONIC LYMPHOCYTIC LEUKAEMIA [None]
